FAERS Safety Report 5868217-7 (Version None)
Quarter: 2008Q3

REPORT INFORMATION
  Report Type: 
  Country: None (occurrence: None)
  Receive Date: 20080902
  Receipt Date: 20080818
  Transmission Date: 20090109
  Serious: Yes (Hospitalization, Disabling)
  Sender: FDA-Public Use
  Company Number: CN-GENENTECH-266742

PATIENT
  Sex: Male

DRUGS (4)
  1. BEVACIZUMAB [Suspect]
     Indication: NON-SMALL CELL LUNG CANCER
     Dosage: 900 MG, Q3W
     Route: 042
     Dates: start: 20080116, end: 20080205
  2. PACLITAXEL [Concomitant]
     Indication: DRUG USE FOR UNKNOWN INDICATION
     Dosage: UNK
     Dates: start: 20080116, end: 20080205
  3. CARBOPLATIN [Concomitant]
     Indication: NON-SMALL CELL LUNG CANCER
     Dosage: UNK
     Dates: start: 20080116, end: 20080303
  4. CEFUROXIME [Concomitant]
     Indication: RESPIRATORY TRACT INFECTION
     Dosage: 1.5 G, UNK
     Route: 042
     Dates: start: 20080227, end: 20080302

REACTIONS (1)
  - RENAL FAILURE ACUTE [None]
